FAERS Safety Report 9271735 (Version 1)
Quarter: 2013Q2

REPORT INFORMATION
  Report Type: Spontaneous
  Country: US (occurrence: US)
  Receive Date: 20130506
  Receipt Date: 20130506
  Transmission Date: 20140414
  Serious: No
  Sender: FDA-Public Use
  Company Number: US-COVIDIEN/TYCO HEALTHCARE/MALLINCKRODT-T201204288

PATIENT
  Age: 73 Year
  Sex: Female

DRUGS (4)
  1. HYDROCODONE/ACETAMINOPHEN [Suspect]
     Indication: BACK PAIN
     Dosage: 10/325 MG Q4-6 HOURS PRN
     Route: 048
     Dates: start: 201107
  2. LIPITOR [Concomitant]
     Indication: BLOOD CHOLESTEROL INCREASED
     Dosage: UNK
     Route: 048
  3. CELEXA                             /00582602/ [Concomitant]
     Indication: DEPRESSION
     Dosage: UNK
     Route: 048
  4. LEXAPRO [Concomitant]
     Indication: ANXIETY
     Dosage: UNK
     Route: 048

REACTIONS (2)
  - Hyperhidrosis [Recovered/Resolved]
  - Drug ineffective [Recovered/Resolved]
